FAERS Safety Report 10159241 (Version 2)
Quarter: 2014Q2

REPORT INFORMATION
  Report Type: Spontaneous
  Country: CA (occurrence: CA)
  Receive Date: 20140508
  Receipt Date: 20140508
  Transmission Date: 20141212
  Serious: Yes (Other)
  Sender: FDA-Public Use
  Company Number: CA-AMGEN-CANSP2014030872

PATIENT
  Age: 45 Year
  Sex: Female

DRUGS (1)
  1. NEUPOGEN [Suspect]
     Indication: NEUTROPENIA
     Dosage: 1 ML/300 MCG, UNK
     Route: 065
     Dates: start: 20140425

REACTIONS (7)
  - Cystitis [Recovered/Resolved]
  - Pyrexia [Recovered/Resolved]
  - Pain in jaw [Unknown]
  - Chest discomfort [Recovered/Resolved]
  - Head discomfort [Recovered/Resolved]
  - Blood viscosity increased [Recovered/Resolved]
  - White blood cell count increased [Recovered/Resolved]
